FAERS Safety Report 7163120-7 (Version None)
Quarter: 2010Q4

REPORT INFORMATION
  Report Type: 
  Country: None (occurrence: None)
  Receive Date: 20101215
  Receipt Date: 20100226
  Transmission Date: 20110411
  Serious: Yes (Other)
  Sender: FDA-Public Use
  Company Number: US-PFIZER INC-2010026732

PATIENT
  Sex: Male
  Weight: 82.993 kg

DRUGS (15)
  1. LYRICA [Suspect]
     Indication: NEUROPATHY PERIPHERAL
     Dosage: 50 MG, 3X/DAY
     Route: 048
     Dates: start: 20100201
  2. TORADOL [Concomitant]
     Dosage: UNK
  3. VICODIN [Concomitant]
     Dosage: UNK
  4. SEROQUEL [Concomitant]
     Dosage: UNK
  5. CELEXA [Concomitant]
     Dosage: UNK
  6. PLAVIX [Concomitant]
     Dosage: UNK
  7. PRILOSEC [Concomitant]
     Dosage: UNK
  8. ZOCOR [Concomitant]
     Dosage: UNK
  9. DIGOXIN [Concomitant]
     Dosage: UNK
  10. HYTRIN [Concomitant]
     Dosage: UNK
  11. AMARYL [Concomitant]
     Dosage: UNK
  12. LOTREL [Concomitant]
     Dosage: UNK
  13. TOPROL-XL [Concomitant]
     Dosage: UNK
  14. SENNA [Concomitant]
  15. GLUCOPHAGE [Concomitant]

REACTIONS (5)
  - DRUG INTOLERANCE [None]
  - IRRITABILITY [None]
  - MOOD ALTERED [None]
  - NAUSEA [None]
  - PAIN [None]
